FAERS Safety Report 9730314 (Version 2)
Quarter: 2014Q1

REPORT INFORMATION
  Report Type: Spontaneous
  Country: DE (occurrence: DE)
  Receive Date: 20131202
  Receipt Date: 20140122
  Transmission Date: 20141002
  Serious: Yes (Hospitalization)
  Sender: FDA-Public Use
  Company Number: DE-UCBSA-104611

PATIENT
  Sex: Male
  Weight: 73 kg

DRUGS (9)
  1. LACOSAMIDE [Suspect]
     Dosage: 250/DAY
  2. ERGENYL CHRONO [Suspect]
     Indication: DEPRESSION
     Route: 048
     Dates: start: 2003
  3. ERGENYL CHRONO [Suspect]
     Indication: EPILEPSY
     Route: 048
     Dates: start: 2003
  4. CARBAMAZEPINE [Concomitant]
     Dosage: MAX. 1200 MG
  5. VALPROATE [Concomitant]
     Dosage: 1800 MG DAILY
  6. VALPROATE [Concomitant]
     Dosage: 1400 MG DAILY
  7. VIMPAT [Concomitant]
     Indication: EPILEPSY
     Dosage: 100 MG; DOSE PER INTAKE: 100/150 MG
     Route: 048
     Dates: start: 20130204
  8. VENLAFAXINE [Concomitant]
     Indication: PSYCHIATRIC SYMPTOM
     Route: 048
  9. OLANZAPIN [Concomitant]
     Indication: DEPRESSION
     Route: 048

REACTIONS (3)
  - Convulsion [Recovered/Resolved]
  - Gait disturbance [Recovering/Resolving]
  - Fatigue [Recovering/Resolving]
